FAERS Safety Report 8886651 (Version 1)
Quarter: 2012Q4

REPORT INFORMATION
  Report Type: 
  Country: US (occurrence: US)
  Receive Date: 20121105
  Receipt Date: 20121105
  Transmission Date: 20130627
  Serious: Yes (Hospitalization)
  Sender: FDA-Public Use
  Company Number: PHHY2012US099040

PATIENT
  Sex: Female

DRUGS (3)
  1. METHADONE [Suspect]
     Dosage: Maternal dose: 70mg/day
     Route: 064
  2. METHADONE [Suspect]
     Route: 063
  3. HEROIN [Suspect]
     Route: 015

REACTIONS (6)
  - Excoriation [Unknown]
  - Crying [Unknown]
  - Sneezing [Unknown]
  - Diarrhoea [Unknown]
  - Drug withdrawal syndrome neonatal [Recovered/Resolved]
  - Foetal exposure during pregnancy [Unknown]
